FAERS Safety Report 6391554-7 (Version None)
Quarter: 2009Q3

REPORT INFORMATION
  Report Type: 
  Country: None (occurrence: None)
  Receive Date: 20090616
  Receipt Date: 20090616
  Transmission Date: 20100115
  Serious: Yes (Other)
  Sender: FDA-Public Use
  Company Number: None

PATIENT
  Age: 23 Year
  Sex: Male
  Weight: 108.6 kg

DRUGS (1)
  1. M-DROL ANDROSTENEDIONE [Suspect]
     Indication: MUSCLE BUILDING THERAPY
     Dosage: 10MG DAILY ORAL
     Route: 048

REACTIONS (4)
  - DECREASED APPETITE [None]
  - HEPATITIS CHOLESTATIC [None]
  - RENAL FAILURE ACUTE [None]
  - WEIGHT DECREASED [None]
